FAERS Safety Report 7663493-2 (Version None)
Quarter: 2011Q3

REPORT INFORMATION
  Report Type: 
  Country: None (occurrence: None)
  Receive Date: 20110805
  Receipt Date: 20100916
  Transmission Date: 20111222
  Serious: No
  Sender: FDA-Public Use
  Company Number: US-ABBOTT-10P-163-0671051-00

PATIENT
  Sex: Male
  Weight: 90.8 kg

DRUGS (11)
  1. SIMVASTATIN [Concomitant]
     Indication: PRODUCT USED FOR UNKNOWN INDICATION
     Route: 048
  2. LOVAZA [Concomitant]
     Indication: PRODUCT USED FOR UNKNOWN INDICATION
     Route: 048
  3. PROPRANOLOL [Concomitant]
     Indication: PRODUCT USED FOR UNKNOWN INDICATION
     Route: 048
  4. NIASPAN [Suspect]
     Indication: DYSLIPIDAEMIA
     Dosage: AT NIGHT
     Route: 048
     Dates: start: 20050101
  5. AMLODIPINE [Concomitant]
     Indication: PRODUCT USED FOR UNKNOWN INDICATION
     Route: 048
  6. TRAIM/HCTZ [Concomitant]
     Indication: PRODUCT USED FOR UNKNOWN INDICATION
     Dosage: DAILY ESCEPT FOR SUMMER MONTHS
     Route: 048
  7. NIASPAN [Suspect]
     Dosage: AT NGIHT
     Route: 048
  8. ASPIRIN [Concomitant]
     Indication: PRODUCT USED FOR UNKNOWN INDICATION
     Route: 048
  9. NIASPAN [Suspect]
     Dosage: AT NIGHT
     Route: 048
  10. NIASPAN [Suspect]
     Dosage: Q HS
     Route: 048
  11. NEXIUM [Concomitant]
     Indication: PRODUCT USED FOR UNKNOWN INDICATION
     Route: 048

REACTIONS (1)
  - FLUSHING [None]
